FAERS Safety Report 12746330 (Version 3)
Quarter: 2016Q4

REPORT INFORMATION
  Report Type: Spontaneous
  Country: FI (occurrence: FI)
  Receive Date: 20160915
  Receipt Date: 20161109
  Transmission Date: 20170207
  Serious: Yes (Other)
  Sender: FDA-Public Use
  Company Number: FI-PFIZER INC-2016425625

PATIENT
  Age: 66 Year
  Sex: Female

DRUGS (5)
  1. LYRICA [Suspect]
     Active Substance: PREGABALIN
     Dosage: 300 MG, DAILY
  2. LYRICA [Suspect]
     Active Substance: PREGABALIN
     Indication: PAIN
     Dosage: 25 MG, 3X/DAY
  3. LYRICA [Suspect]
     Active Substance: PREGABALIN
     Dosage: 20 MG, 3X/DAY
     Dates: start: 2015
  4. PANACOD [Concomitant]
     Active Substance: ACETAMINOPHEN\CODEINE PHOSPHATE
     Dosage: UNK
     Dates: start: 1995
  5. SOTACOR [Concomitant]
     Active Substance: SOTALOL HYDROCHLORIDE
     Dosage: UNK
     Dates: start: 1982

REACTIONS (14)
  - Balance disorder [Not Recovered/Not Resolved]
  - Fall [Not Recovered/Not Resolved]
  - Ileus paralytic [Not Recovered/Not Resolved]
  - Contusion [Not Recovered/Not Resolved]
  - Hypotonia [Not Recovered/Not Resolved]
  - Dependence [Not Recovered/Not Resolved]
  - Walking disability [Not Recovered/Not Resolved]
  - Tendinous contracture [Not Recovered/Not Resolved]
  - Anal incontinence [Not Recovered/Not Resolved]
  - Vision blurred [Recovered/Resolved]
  - Gait disturbance [Not Recovered/Not Resolved]
  - Fatigue [Not Recovered/Not Resolved]
  - Drug intolerance [Unknown]
  - Intentional product use issue [Unknown]

NARRATIVE: CASE EVENT DATE: 2013
